FAERS Safety Report 18695026 (Version 1)
Quarter: 2021Q1

REPORT INFORMATION
  Report Type: Spontaneous
  Country: US (occurrence: US)
  Receive Date: 20210102
  Receipt Date: 20210102
  Transmission Date: 20210419
  Serious: Yes (Other)
  Sender: FDA-Public Use
  Company Number: None

PATIENT
  Age: 79 Year
  Sex: Female
  Weight: 65.7 kg

DRUGS (28)
  1. FOLGARD [Concomitant]
  2. HYOSCYAMINE. [Concomitant]
     Active Substance: HYOSCYAMINE
  3. VITAMIN C [Concomitant]
     Active Substance: ASCORBIC ACID
  4. MECLIZINE [Concomitant]
     Active Substance: MECLIZINE HYDROCHLORIDE
  5. OCTAGAM IMMUNE GLOBULIN (HUMAN) [Concomitant]
     Active Substance: HUMAN IMMUNOGLOBULIN G
  6. PLAVIX [Concomitant]
     Active Substance: CLOPIDOGREL BISULFATE
  7. OMEPRAZOLE. [Concomitant]
     Active Substance: OMEPRAZOLE
  8. LIDODERM [Concomitant]
     Active Substance: LIDOCAINE
  9. COENZYME Q10 [Concomitant]
     Active Substance: DIETARY SUPPLEMENT\UBIDECARENONE
  10. MAGNESIUM [Concomitant]
     Active Substance: MAGNESIUM
  11. MULTIVITAMIN [Concomitant]
     Active Substance: VITAMINS
  12. FUROSEMIDE. [Concomitant]
     Active Substance: FUROSEMIDE
  13. MONTELUKAST [Concomitant]
     Active Substance: MONTELUKAST SODIUM
  14. AZELASTINE. [Concomitant]
     Active Substance: AZELASTINE HYDROCHLORIDE
  15. FISH OIL [Concomitant]
     Active Substance: FISH OIL
  16. PROBIOTICS [Concomitant]
     Active Substance: PROBIOTICS NOS
  17. PRAMIPEXOLE. [Concomitant]
     Active Substance: PRAMIPEXOLE
  18. TRAMADOL. [Concomitant]
     Active Substance: TRAMADOL
  19. BENEFIBER [Concomitant]
     Active Substance: STARCH, WHEAT
  20. VITAMIN B COMPLEX [Concomitant]
     Active Substance: CYANOCOBALAMIN\DEXPANTHENOL\NIACINAMIDE\PYRIDOXINE HYDROCHLORIDE\RIBOFLAVIN 5^-PHOSPHATE SODIUM\THIAMINE HYDROCHLORIDE\VITAMIN B COMPLEX
  21. GABAPENTIN. [Concomitant]
     Active Substance: GABAPENTIN
  22. EPICENTER [Concomitant]
  23. OTEZLA [Suspect]
     Active Substance: APREMILAST
     Indication: PSORIASIS
     Dosage: ?          QUANTITY:1 TABLET(S);?
     Route: 048
     Dates: start: 20201204
  24. UREA CREAM [Concomitant]
     Active Substance: UREA
  25. TYLENOL [Concomitant]
     Active Substance: ACETAMINOPHEN
  26. DIPTOLENE [Concomitant]
  27. BLACK COHOSH [Concomitant]
     Active Substance: BLACK COHOSH
  28. CALCIUM 600PLUS VITAMIN D3 [Concomitant]

REACTIONS (5)
  - Restless legs syndrome [None]
  - Gait inability [None]
  - Abnormal sleep-related event [None]
  - Pain in extremity [None]
  - Muscle spasms [None]

NARRATIVE: CASE EVENT DATE: 20201226
